FAERS Safety Report 20534968 (Version 2)
Quarter: 2022Q2

REPORT INFORMATION
  Report Type: Spontaneous
  Country: JP (occurrence: JP)
  Receive Date: 20220302
  Receipt Date: 20220506
  Transmission Date: 20220721
  Serious: Yes (Hospitalization, Other)
  Sender: FDA-Public Use
  Company Number: JP-TAKEDA-2022TJP025274

PATIENT
  Age: 2 Year
  Sex: Female
  Weight: 9.224 kg

DRUGS (9)
  1. VALPROATE SODIUM [Suspect]
     Active Substance: VALPROATE SODIUM
     Indication: Epilepsy
     Dosage: 130 MILLIGRAM, BID
     Route: 050
  2. CARBAMAZEPINE [Suspect]
     Active Substance: CARBAMAZEPINE
     Indication: Epilepsy
     Dosage: 20 MILLIGRAM, BID
     Route: 050
  3. TOPIRAMATE [Suspect]
     Active Substance: TOPIRAMATE
     Indication: Epilepsy
     Dosage: 0.4 UNK, BID
     Route: 050
  4. MYSTAN [Suspect]
     Active Substance: CLOBAZAM
     Indication: Epilepsy
     Dosage: 0.5 MILLIGRAM, BID
     Route: 050
  5. LEVOCARNITINE [Concomitant]
     Active Substance: LEVOCARNITINE
     Indication: Supplementation therapy
     Dosage: 0.3 MILLILITER, TID
     Route: 050
  6. DIETARY SUPPLEMENT\PROBIOTICS [Concomitant]
     Active Substance: DIETARY SUPPLEMENT\PROBIOTICS
     Route: 065
  7. BIFIDOBACTERIUM SPP. [Concomitant]
     Active Substance: BIFIDOBACTERIUM SPP.
     Route: 065
  8. MOSAPRIDE CITRATE [Concomitant]
     Active Substance: MOSAPRIDE CITRATE
     Route: 065
  9. POLAPREZINC [Concomitant]
     Active Substance: POLAPREZINC
     Route: 065

REACTIONS (3)
  - Respiratory depression [Recovered/Resolved]
  - Glossoptosis [Recovered/Resolved]
  - Secretion discharge [Unknown]

NARRATIVE: CASE EVENT DATE: 20220201
